FAERS Safety Report 9375893 (Version 2)
Quarter: 2013Q4

REPORT INFORMATION
  Report Type: Spontaneous
  Country: US (occurrence: US)
  Receive Date: 20130628
  Receipt Date: 20131213
  Transmission Date: 20140711
  Serious: Yes (Hospitalization)
  Sender: FDA-Public Use
  Company Number: US-B.I. PHARMACEUTICALS,INC./RIDGEFIELD-2013-BI-18567BP

PATIENT
  Age: 89 Year
  Sex: Male
  Weight: 83.91 kg

DRUGS (12)
  1. PRADAXA [Suspect]
     Indication: ANTICOAGULANT THERAPY
     Dosage: 300 MG
     Route: 048
     Dates: start: 20120306, end: 20120605
  2. ALLOPURINOL [Concomitant]
     Indication: GOUT
     Dosage: 300 MG
     Route: 048
  3. FINASTERIDE [Concomitant]
     Indication: PROSTATIC DISORDER
     Dosage: 5 MG
     Route: 048
  4. FUROSEMIDE [Concomitant]
     Indication: FLUID OVERLOAD
     Dosage: 40 MG
     Route: 048
  5. FUROSEMIDE [Concomitant]
     Indication: BLOOD PRESSURE ABNORMAL
  6. MAGNESIUM OXIDE [Concomitant]
     Indication: SUPPLEMENTATION THERAPY
     Dosage: 420 MG
     Route: 048
  7. METOPROLOL SUCCINATE [Concomitant]
     Indication: BLOOD PRESSURE ABNORMAL
     Dosage: 50 MG
     Route: 048
  8. OMEPRAZOLE [Concomitant]
     Indication: GASTROINTESTINAL DISORDER
     Dosage: 40 MG
     Route: 048
  9. SIMVASTATIN [Concomitant]
     Indication: BLOOD CHOLESTEROL ABNORMAL
     Dosage: 10 MG
     Route: 048
  10. TERAZOSIN [Concomitant]
     Indication: BLOOD PRESSURE ABNORMAL
     Route: 048
  11. TERAZOSIN [Concomitant]
     Indication: PROSTATIC DISORDER
  12. TRAMADOL HCL [Concomitant]
     Indication: PAIN
     Dosage: 50 MG
     Route: 048

REACTIONS (2)
  - Gastrointestinal haemorrhage [Unknown]
  - Anaemia [Unknown]
